FAERS Safety Report 5808642-3 (Version None)
Quarter: 2008Q3

REPORT INFORMATION
  Report Type: 
  Country: None (occurrence: None)
  Receive Date: 20080714
  Receipt Date: 20080710
  Transmission Date: 20090109
  Serious: Yes (Hospitalization)
  Sender: FDA-Public Use
  Company Number: FR-BRISTOL-MYERS SQUIBB COMPANY-14256051

PATIENT
  Age: 49 Year
  Sex: Female

DRUGS (2)
  1. MUCOMYST [Suspect]
     Dates: start: 20080616
  2. SUCRALFATE [Suspect]
     Dates: start: 20080616

REACTIONS (3)
  - ERYTHEMA [None]
  - PRURITUS [None]
  - RASH [None]
